FAERS Safety Report 21275209 (Version 2)
Quarter: 2022Q3

REPORT INFORMATION
  Report Type: Spontaneous
  Country: None (occurrence: US)
  Receive Date: 20220831
  Receipt Date: 20220908
  Transmission Date: 20221027
  Serious: No
  Sender: FDA-Public Use
  Company Number: US-LNK INTERNATIONAL, INC.-2132418

PATIENT
  Sex: Male

DRUGS (2)
  1. NASAL DECONGESTANT PE NON DROWSY [Suspect]
     Active Substance: PHENYLEPHRINE HYDROCHLORIDE
     Indication: Nasal decongestion therapy
  2. SERTRALINE [Concomitant]
     Active Substance: SERTRALINE HYDROCHLORIDE

REACTIONS (7)
  - Hyperhidrosis [None]
  - Nausea [None]
  - Vomiting [None]
  - Dizziness [None]
  - Diarrhoea [None]
  - Haematemesis [None]
  - Vomiting [None]
